FAERS Safety Report 7742237-X (Version None)
Quarter: 2011Q3

REPORT INFORMATION
  Report Type: 
  Country: None (occurrence: None)
  Receive Date: 20110901
  Receipt Date: 20110823
  Transmission Date: 20111222
  Serious: Yes (Other)
  Sender: FDA-Public Use
  Company Number: 2011SP040331

PATIENT
  Age: 30 Year
  Sex: Female
  Weight: 60 kg

DRUGS (1)
  1. IMPLANON [Suspect]
     Indication: CONTRACEPTION
     Dosage: SC
     Route: 058
     Dates: start: 20101201, end: 20110823

REACTIONS (4)
  - MENORRHAGIA [None]
  - ANAEMIA [None]
  - DRUG INEFFECTIVE [None]
  - ABNORMAL WITHDRAWAL BLEEDING [None]
